FAERS Safety Report 8565259-8 (Version None)
Quarter: 2012Q3

REPORT INFORMATION
  Report Type: 
  Country: None (occurrence: None)
  Receive Date: 20120803
  Receipt Date: 20120801
  Transmission Date: 20120928
  Serious: Yes (Other)
  Sender: FDA-Public Use
  Company Number: IE-GLAXOSMITHKLINE-B0820323A

PATIENT
  Age: 60 Year
  Sex: Female

DRUGS (5)
  1. LAMICTAL [Suspect]
     Indication: DEPRESSION
     Dosage: 25MG TWICE PER DAY
     Route: 048
  2. NEXIUM [Concomitant]
     Dosage: 20MG PER DAY
     Route: 048
  3. ZOLPIDEM TATRATE [Concomitant]
     Dosage: 10MG PER DAY
     Route: 048
  4. LIVIAL [Concomitant]
     Dosage: 2.5MG PER DAY
     Route: 048
  5. EFFEXOR XR [Concomitant]
     Indication: DEPRESSION
     Dosage: 112.5MG PER DAY
     Route: 048

REACTIONS (2)
  - SKIN BURNING SENSATION [None]
  - RASH [None]
